FAERS Safety Report 17951920 (Version 1)
Quarter: 2020Q2

REPORT INFORMATION
  Report Type: Spontaneous
  Country: CZ (occurrence: CZ)
  Receive Date: 20200626
  Receipt Date: 20200626
  Transmission Date: 20200714
  Serious: Yes (Other)
  Sender: FDA-Public Use
  Company Number: CZ-BAUSCH-BL-2019-062626

PATIENT
  Sex: Female

DRUGS (4)
  1. AFLIBERCEPT [Suspect]
     Active Substance: AFLIBERCEPT
     Indication: COLORECTAL CANCER
     Dosage: QCY
     Route: 065
     Dates: start: 201505, end: 201706
  2. IRINOTECAN [Suspect]
     Active Substance: IRINOTECAN
     Indication: COLORECTAL CANCER
     Dosage: QCY
     Route: 065
     Dates: start: 201505, end: 201605
  3. FLUOROURACIL. [Suspect]
     Active Substance: FLUOROURACIL
     Indication: COLORECTAL CANCER
     Dosage: QCY
     Route: 065
     Dates: start: 201505, end: 201605
  4. FOLINIC ACID [Suspect]
     Active Substance: LEUCOVORIN
     Indication: COLORECTAL CANCER
     Dosage: QCY
     Route: 065
     Dates: start: 201505, end: 201605

REACTIONS (6)
  - Haematotoxicity [Unknown]
  - Gout [Unknown]
  - Nausea [Unknown]
  - Conjunctivitis [Unknown]
  - Disease progression [Unknown]
  - Fatigue [Unknown]

NARRATIVE: CASE EVENT DATE: 201605
